FAERS Safety Report 4701715-8 (Version None)
Quarter: 2005Q2

REPORT INFORMATION
  Report Type: 
  Country: None (occurrence: None)
  Receive Date: 20050628
  Receipt Date: 20050617
  Transmission Date: 20051028
  Serious: Yes (Hospitalization, Other)
  Sender: FDA-Public Use
  Company Number: PHNR2005AU01005

PATIENT
  Sex: Male

DRUGS (1)
  1. TEGRETOL [Suspect]
     Indication: TRIGEMINAL NEURALGIA

REACTIONS (6)
  - CEREBRAL DISORDER [None]
  - COGNITIVE DISORDER [None]
  - DEMENTIA [None]
  - DEPRESSION [None]
  - INTENTIONAL MISUSE [None]
  - OVERDOSE [None]
